FAERS Safety Report 22300212 (Version 2)
Quarter: 2023Q2

REPORT INFORMATION
  Report Type: Spontaneous
  Country: US (occurrence: US)
  Receive Date: 20230509
  Receipt Date: 20230522
  Transmission Date: 20230721
  Serious: No
  Sender: FDA-Public Use
  Company Number: US-BRISTOL-MYERS SQUIBB COMPANY-2023-065687

PATIENT
  Age: 62 Year
  Sex: Male

DRUGS (1)
  1. REVLIMID [Suspect]
     Active Substance: LENALIDOMIDE
     Indication: Bone disorder
     Route: 048
     Dates: start: 20230504

REACTIONS (8)
  - Back pain [Unknown]
  - Fatigue [Unknown]
  - Somnolence [Unknown]
  - Decreased appetite [Unknown]
  - Taste disorder [Unknown]
  - Constipation [Unknown]
  - Conjunctivitis [Unknown]
  - Off label use [Unknown]
